FAERS Safety Report 19010112 (Version 2)
Quarter: 2023Q2

REPORT INFORMATION
  Report Type: Spontaneous
  Country: ES (occurrence: ES)
  Receive Date: 20210316
  Receipt Date: 20230509
  Transmission Date: 20230722
  Serious: Yes (Death, Other)
  Sender: FDA-Public Use
  Company Number: ES-AMGEN-ESPSP2021039806

PATIENT

DRUGS (8)
  1. CARFILZOMIB [Suspect]
     Active Substance: CARFILZOMIB
     Indication: Plasma cell myeloma
     Dosage: 20 MILLIGRAM/SQ. METER, QWK, DAYS 1, 8 AND 15
     Route: 042
  2. CARFILZOMIB [Suspect]
     Active Substance: CARFILZOMIB
     Dosage: 56 MILLIGRAM/SQ. METER, QWK, DAYS 1, 8 AND 15
     Route: 042
  3. CARFILZOMIB [Suspect]
     Active Substance: CARFILZOMIB
     Dosage: 70 MILLIGRAM/SQ. METER, QWK, DAYS 1, 8 AND 15
     Route: 042
  4. CARFILZOMIB [Suspect]
     Active Substance: CARFILZOMIB
     Dosage: PLUS/MINUS AT A DOSE OF 300 MG/M2  IV ON DAYS 1, 8 AND 15 OF EACH 28 DAYS-CYCLE
     Route: 042
  5. DEXAMETHASONE [Concomitant]
     Active Substance: DEXAMETHASONE
     Indication: Plasma cell myeloma
     Dosage: 20 MILLIGRAM (ORAL/INTRAVENOUS)
     Route: 048
  6. DEXAMETHASONE [Concomitant]
     Active Substance: DEXAMETHASONE
     Dosage: 10 MILLIGRAM (ORAL/INTRAVENOUS)
     Route: 048
  7. CYCLOPHOSPHAMIDE [Concomitant]
     Active Substance: CYCLOPHOSPHAMIDE
     Indication: Plasma cell myeloma
     Dosage: UNK, QWK, PLUS/MINUS 300 MG/SQ.METER, DAYS 1, 8 AND 15
     Route: 042
  8. CYCLOPHOSPHAMIDE [Concomitant]
     Active Substance: CYCLOPHOSPHAMIDE
     Dosage: UNK, Q2WK, AFTER 12 CYCLE, PLUS/MINUS 300 MG/SQ.METER
     Route: 042

REACTIONS (45)
  - Death [Fatal]
  - Infection [Fatal]
  - Sepsis [Fatal]
  - Pneumonia aspiration [Fatal]
  - Pneumonia influenzal [Fatal]
  - Pneumonia [Fatal]
  - Plasma cell myeloma [Fatal]
  - Neutropenia [Unknown]
  - Thrombocytopenia [Unknown]
  - Pulmonary oedema [Unknown]
  - Myocardial ischaemia [Unknown]
  - Asthenia [Unknown]
  - Pulmonary hypertension [Unknown]
  - Urinary tract infection [Unknown]
  - Gastrointestinal infection [Unknown]
  - Diarrhoea [Unknown]
  - Acute kidney injury [Unknown]
  - Dyspnoea [Unknown]
  - Cardiac failure [Unknown]
  - Myocardial infarction [Unknown]
  - Upper respiratory tract infection [Unknown]
  - Neutropenia [Unknown]
  - COVID-19 pneumonia [Unknown]
  - Atrial fibrillation [Unknown]
  - Hypertension [Unknown]
  - Renal impairment [Unknown]
  - Thrombotic microangiopathy [Unknown]
  - Haemolytic anaemia [Unknown]
  - Hepatotoxicity [Unknown]
  - Neuropathy peripheral [Unknown]
  - Haemolytic uraemic syndrome [Unknown]
  - Rash [Unknown]
  - Nausea [Unknown]
  - Vomiting [Unknown]
  - Adverse event [Unknown]
  - Constipation [Unknown]
  - Dyspepsia [Unknown]
  - Decreased appetite [Unknown]
  - Oedema peripheral [Unknown]
  - Pyrexia [Unknown]
  - Anaemia [Unknown]
  - Therapy partial responder [Unknown]
  - Therapy non-responder [Unknown]
  - Drug intolerance [Unknown]
  - Off label use [Unknown]
